FAERS Safety Report 10075599 (Version 5)
Quarter: 2015Q2

REPORT INFORMATION
  Report Type: Spontaneous
  Country: US (occurrence: US)
  Receive Date: 20140414
  Receipt Date: 20150610
  Transmission Date: 20150821
  Serious: Yes (Congenital Anomaly, Other)
  Sender: FDA-Public Use
  Company Number: US-ELI_LILLY_AND_COMPANY-US201404001918

PATIENT

DRUGS (4)
  1. AMPICILLIN                         /00000502/ [Concomitant]
     Active Substance: AMPICILLIN
     Indication: PRODUCT USED FOR UNKNOWN INDICATION
     Dosage: UNK
     Route: 064
     Dates: start: 20040629, end: 20040629
  2. PROZAC [Suspect]
     Active Substance: FLUOXETINE HYDROCHLORIDE
     Indication: PRODUCT USED FOR UNKNOWN INDICATION
     Dosage: UNK, UNKNOWN
     Route: 064
  3. AMPICILLIN                         /00000502/ [Concomitant]
     Active Substance: AMPICILLIN
     Indication: PRODUCT USED FOR UNKNOWN INDICATION
     Dosage: UNK
     Route: 064
     Dates: start: 20040629, end: 20040629
  4. PROZAC [Suspect]
     Active Substance: FLUOXETINE HYDROCHLORIDE
     Indication: PRODUCT USED FOR UNKNOWN INDICATION
     Dosage: UNK, UNKNOWN
     Route: 064

REACTIONS (13)
  - Foetal heart rate deceleration abnormality [Unknown]
  - Cleft lip and palate [Unknown]
  - Acrochordon [Unknown]
  - Talipes [Unknown]
  - Craniosynostosis [Unknown]
  - Amniotic band syndrome [Unknown]
  - Ventricular septal defect [Unknown]
  - Seizure [Unknown]
  - Premature baby [Unknown]
  - Aplasia cutis congenita [Unknown]
  - Encephalocele [Unknown]
  - Neonatal respiratory distress syndrome [Unknown]
  - Foetal exposure during pregnancy [Unknown]
